FAERS Safety Report 4583501-5 (Version None)
Quarter: 2005Q1

REPORT INFORMATION
  Report Type: 
  Country: None (occurrence: None)
  Receive Date: 20050211
  Receipt Date: 20050127
  Transmission Date: 20050727
  Serious: Yes (Hospitalization)
  Sender: FDA-Public Use
  Company Number: 8008238

PATIENT
  Age: 68 Year
  Sex: Male
  Weight: 72 kg

DRUGS (8)
  1. KEPPRA [Suspect]
     Indication: EPILEPSY
     Dosage: 500 MG / D PO
     Route: 048
     Dates: start: 20040420, end: 20040801
  2. APONAL [Concomitant]
  3. CIPRAMIL [Concomitant]
  4. EBIXA [Concomitant]
  5. AGGRENOX [Concomitant]
  6. NATIL [Concomitant]
  7. ERGENYL CHRONO [Concomitant]
  8. NUCTALON [Concomitant]

REACTIONS (5)
  - DEMENTIA [None]
  - DEMENTIA ALZHEIMER'S TYPE [None]
  - DEPRESSION [None]
  - DISEASE PROGRESSION [None]
  - THERAPY NON-RESPONDER [None]
